FAERS Safety Report 8499280-5 (Version None)
Quarter: 2012Q2

REPORT INFORMATION
  Report Type: 
  Country: None (occurrence: None)
  Receive Date: 20120405
  Receipt Date: 20110119
  Transmission Date: 20120825
  Serious: Yes (Disabling, Other)
  Sender: FDA-Public Use
  Company Number: PHHY2010US90147

PATIENT
  Age: 64 Year
  Sex: Female

DRUGS (1)
  1. RECLAST [Suspect]
     Dosage: INTRAVENOUS
     Route: 042
     Dates: start: 20101228

REACTIONS (3)
  - DYSPNOEA [None]
  - BACK PAIN [None]
  - ARTHRALGIA [None]
